FAERS Safety Report 7910125-1 (Version None)
Quarter: 2011Q4

REPORT INFORMATION
  Report Type: 
  Country: None (occurrence: None)
  Receive Date: 20111111
  Receipt Date: 20111025
  Transmission Date: 20120403
  Serious: Yes (Other)
  Sender: FDA-Public Use
  Company Number: JP-ROCHE-GNE321391

PATIENT
  Sex: Female
  Weight: 51 kg

DRUGS (11)
  1. RANIBIZUMAB [Suspect]
     Dosage: REGIMEN;5
     Route: 050
     Dates: start: 20110401
  2. PITAVASTATIN CALCIUM [Concomitant]
     Dates: start: 20100901
  3. RANIBIZUMAB [Suspect]
     Dosage: REGIMEN: 3
     Route: 050
     Dates: start: 20091110
  4. RANIBIZUMAB [Suspect]
     Dosage: REGIMEN 4
     Route: 050
     Dates: start: 20110301
  5. LEVOFLOXACIN [Concomitant]
     Dates: start: 20090801, end: 20091101
  6. RANIBIZUMAB [Suspect]
     Dosage: REGIMEN: 2
     Route: 050
     Dates: start: 20091002
  7. RANIBIZUMAB [Suspect]
     Indication: CHOROIDAL NEOVASCULARISATION
     Dosage: REGIMEN: 1
     Route: 050
     Dates: start: 20110807
  8. CRESTOR [Concomitant]
     Dates: start: 20100901
  9. RANIBIZUMAB [Suspect]
     Dosage: REGIMEN;6
     Route: 050
     Dates: start: 20110501
  10. FOSAMAX [Concomitant]
  11. ZETIA [Concomitant]
     Dates: start: 20100901

REACTIONS (4)
  - HERPES ZOSTER [None]
  - VISUAL ACUITY REDUCED [None]
  - MACULAR HOLE [None]
  - MACULOPATHY [None]
